FAERS Safety Report 7260375-5 (Version None)
Quarter: 2011Q1

REPORT INFORMATION
  Report Type: 
  Country: None (occurrence: None)
  Receive Date: 20110130
  Receipt Date: 20101005
  Transmission Date: 20110831
  Serious: No
  Sender: FDA-Public Use
  Company Number: US-ABBOTT-10P-163-0677059-00

PATIENT
  Sex: Female
  Weight: 72.64 kg

DRUGS (11)
  1. HUMIRA [Suspect]
     Indication: RHEUMATOID ARTHRITIS
     Dates: start: 20100601, end: 20100801
  2. TUMS [Concomitant]
     Indication: PRODUCT USED FOR UNKNOWN INDICATION
  3. LEUCOVORCAL [Concomitant]
     Indication: ALOPECIA
  4. DIGITEX [Concomitant]
     Indication: CARDIAC DISORDER
  5. INDAPAMIDE [Concomitant]
     Indication: HYPERTENSION
  6. POTASSIUM CHLORIDE [Concomitant]
     Indication: MINERAL SUPPLEMENTATION
  7. HUMIRA [Suspect]
     Dates: start: 20100903
  8. FOLIC ACID [Concomitant]
     Indication: ALOPECIA
  9. METHOTREXATE [Concomitant]
     Indication: RHEUMATOID ARTHRITIS
  10. EVISTA [Concomitant]
     Indication: BONE DISORDER
  11. AVAPRO [Concomitant]
     Indication: HYPERTENSION

REACTIONS (1)
  - CYSTITIS [None]
